FAERS Safety Report 19398505 (Version 1)
Quarter: 2021Q2

REPORT INFORMATION
  Report Type: Spontaneous
  Country: US (occurrence: US)
  Receive Date: 20210609
  Receipt Date: 20210609
  Transmission Date: 20210717
  Serious: Yes (Hospitalization)
  Sender: FDA-Public Use
  Company Number: None

PATIENT
  Age: 60 Year
  Sex: Male

DRUGS (10)
  1. HUMIRA [Suspect]
     Active Substance: ADALIMUMAB
     Indication: RHEUMATOID ARTHRITIS
     Dosage: ?          OTHER FREQUENCY:EVERY TWO WEEKS;?
     Route: 058
     Dates: start: 20190507
  2. ATORVASTATIN [Concomitant]
     Active Substance: ATORVASTATIN
  3. PREDNISONE. [Concomitant]
     Active Substance: PREDNISONE
  4. ASPIRIN LOW DOSE [Concomitant]
     Active Substance: ASPIRIN
  5. CELECOXIB. [Concomitant]
     Active Substance: CELECOXIB
  6. ATENOLOL. [Concomitant]
     Active Substance: ATENOLOL
  7. NITROGLYCERIN. [Concomitant]
     Active Substance: NITROGLYCERIN
  8. TAMSULOSIN [Concomitant]
     Active Substance: TAMSULOSIN
  9. PANTOPRAZOLE [Concomitant]
     Active Substance: PANTOPRAZOLE
  10. BRILINTA [Concomitant]
     Active Substance: TICAGRELOR

REACTIONS (2)
  - Myocardial infarction [None]
  - Therapy interrupted [None]

NARRATIVE: CASE EVENT DATE: 20210531
